FAERS Safety Report 10139111 (Version 1)
Quarter: 2014Q2

REPORT INFORMATION
  Report Type: Spontaneous
  Country: US (occurrence: US)
  Receive Date: 20140429
  Receipt Date: 20140429
  Transmission Date: 20141212
  Serious: No
  Sender: FDA-Public Use
  Company Number: US-PFIZER INC-2014116712

PATIENT
  Age: 52 Year
  Sex: Male

DRUGS (3)
  1. LYRICA [Suspect]
     Indication: DIABETIC NEUROPATHY
     Dosage: 50 MG, 2X/DAY
     Dates: start: 20140409
  2. ENBREL [Concomitant]
     Dosage: 01 ML, WEEKLY
  3. METHOTREXATE [Concomitant]
     Dosage: 0.8 ML, WEEKLY

REACTIONS (1)
  - Skin exfoliation [Not Recovered/Not Resolved]
